FAERS Safety Report 11162204 (Version 1)
Quarter: 2015Q2

REPORT INFORMATION
  Report Type: Spontaneous
  Country: US (occurrence: US)
  Receive Date: 20150604
  Receipt Date: 20150604
  Transmission Date: 20150821
  Serious: No
  Sender: FDA-Public Use
  Company Number: US-SA-2014SA130196

PATIENT
  Age: 44 Year
  Sex: Female

DRUGS (1)
  1. LANTUS [Suspect]
     Active Substance: INSULIN GLARGINE
     Indication: DIABETES MELLITUS
     Dosage: DOSE- 10-15 UNITS
     Route: 065

REACTIONS (3)
  - Drug dose omission [Unknown]
  - Vomiting [Unknown]
  - Hyperglycaemia [Unknown]
